FAERS Safety Report 17193528 (Version 27)
Quarter: 2024Q3

REPORT INFORMATION
  Report Type: Spontaneous
  Country: CA (occurrence: CA)
  Receive Date: 20191223
  Receipt Date: 20240814
  Transmission Date: 20241017
  Serious: Yes (Other)
  Sender: BAUSCH AND LOMB
  Company Number: CA-BAUSCH-BL-2019-065992

PATIENT
  Age: 76 Year
  Sex: Female

DRUGS (200)
  1. BUDESONIDE [Suspect]
     Active Substance: BUDESONIDE
     Indication: Product used for unknown indication
     Route: 048
  2. BUDESONIDE [Suspect]
     Active Substance: BUDESONIDE
     Route: 048
  3. BUDESONIDE [Suspect]
     Active Substance: BUDESONIDE
     Route: 050
  4. BUDESONIDE [Suspect]
     Active Substance: BUDESONIDE
     Route: 050
  5. BUDESONIDE [Suspect]
     Active Substance: BUDESONIDE
     Route: 065
  6. BUDESONIDE [Suspect]
     Active Substance: BUDESONIDE
     Indication: Product used for unknown indication
     Route: 065
  7. DILTIAZEM [Suspect]
     Active Substance: DILTIAZEM
     Indication: Product used for unknown indication
     Route: 065
  8. DILTIAZEM [Suspect]
     Active Substance: DILTIAZEM
     Route: 048
  9. DILTIAZEM [Suspect]
     Active Substance: DILTIAZEM
     Dosage: DILTIAZEM HYDROCHLORIDE
     Route: 065
  10. DILTIAZEM [Suspect]
     Active Substance: DILTIAZEM
     Dosage: DILTIAZEM HYDROCHLORIDE
     Route: 048
  11. METFORMIN [Suspect]
     Active Substance: METFORMIN HYDROCHLORIDE
     Indication: Product used for unknown indication
     Route: 065
  12. METFORMIN [Suspect]
     Active Substance: METFORMIN HYDROCHLORIDE
     Indication: Gastrooesophageal reflux disease
     Route: 065
  13. METFORMIN [Suspect]
     Active Substance: METFORMIN HYDROCHLORIDE
     Route: 048
  14. METFORMIN [Suspect]
     Active Substance: METFORMIN HYDROCHLORIDE
     Dosage: METFORMIN HYDROCHLORIDE
     Route: 048
  15. METFORMIN [Suspect]
     Active Substance: METFORMIN HYDROCHLORIDE
     Dosage: METFORMIN HYDROCHLORIDE
     Route: 065
  16. METFORMIN [Suspect]
     Active Substance: METFORMIN HYDROCHLORIDE
     Dosage: METFORMIN HYDROCHLORIDE
     Route: 065
  17. METFORMIN [Suspect]
     Active Substance: METFORMIN HYDROCHLORIDE
     Dosage: METFORMIN HYDROCHLORIDE
     Route: 048
  18. METFORMIN [Suspect]
     Active Substance: METFORMIN HYDROCHLORIDE
     Route: 065
  19. METFORMIN [Suspect]
     Active Substance: METFORMIN HYDROCHLORIDE
     Route: 048
  20. ALBUTEROL [Suspect]
     Active Substance: ALBUTEROL
     Indication: Asthma
     Route: 065
  21. ALBUTEROL [Suspect]
     Active Substance: ALBUTEROL
     Dosage: SALBUTAMOL SULFATE
     Route: 065
  22. ALBUTEROL [Suspect]
     Active Substance: ALBUTEROL
     Dosage: SALBUTAMOL SULFATE - METERED-DOSE AEROSOL
     Route: 065
  23. ALBUTEROL [Suspect]
     Active Substance: ALBUTEROL
     Dosage: SALBUTAMOL SULFATE
     Route: 055
  24. ALBUTEROL [Suspect]
     Active Substance: ALBUTEROL
     Dosage: SALBUTAMOL HFA - METERED-DOSE (AEROSOL)
     Route: 065
  25. VENLAFAXINE [Suspect]
     Active Substance: VENLAFAXINE HYDROCHLORIDE
     Indication: Product used for unknown indication
     Route: 065
  26. VENLAFAXINE [Suspect]
     Active Substance: VENLAFAXINE HYDROCHLORIDE
     Dosage: VENLAFAXINE HYDROCHLORIDE
     Route: 065
  27. FERROUS SULFATE [Suspect]
     Active Substance: FERROUS SULFATE
     Indication: Product used for unknown indication
     Route: 065
  28. INVOKANA [Suspect]
     Active Substance: CANAGLIFLOZIN
     Indication: Type 2 diabetes mellitus
     Route: 065
  29. INVOKANA [Suspect]
     Active Substance: CANAGLIFLOZIN
     Route: 048
  30. INVOKANA [Suspect]
     Active Substance: CANAGLIFLOZIN
     Route: 048
  31. LANSOPRAZOLE [Suspect]
     Active Substance: LANSOPRAZOLE
     Indication: Product used for unknown indication
     Dosage: DELAYED RELEASE CAPSULE
     Route: 048
  32. LANSOPRAZOLE [Suspect]
     Active Substance: LANSOPRAZOLE
     Dosage: GASTRO-RESISTANT CAPSULE, HARD
     Route: 065
  33. LANSOPRAZOLE [Suspect]
     Active Substance: LANSOPRAZOLE
     Route: 065
  34. LANSOPRAZOLE [Suspect]
     Active Substance: LANSOPRAZOLE
     Dosage: DELAYED RELEASE CAPSULE
     Route: 048
  35. LANSOPRAZOLE [Suspect]
     Active Substance: LANSOPRAZOLE
     Route: 065
  36. LANSOPRAZOLE [Suspect]
     Active Substance: LANSOPRAZOLE
     Route: 065
  37. LANSOPRAZOLE [Suspect]
     Active Substance: LANSOPRAZOLE
     Route: 048
  38. LANSOPRAZOLE [Suspect]
     Active Substance: LANSOPRAZOLE
     Route: 048
  39. LANSOPRAZOLE [Suspect]
     Active Substance: LANSOPRAZOLE
     Route: 065
  40. LANSOPRAZOLE [Suspect]
     Active Substance: LANSOPRAZOLE
     Route: 065
  41. MOMETASONE FUROATE [Suspect]
     Active Substance: MOMETASONE FUROATE
     Indication: Product used for unknown indication
     Route: 065
  42. MOMETASONE FUROATE [Suspect]
     Active Substance: MOMETASONE FUROATE
     Dosage: SPRAY, METERED DOSE
     Route: 065
  43. MOMETASONE FUROATE [Suspect]
     Active Substance: MOMETASONE FUROATE
     Route: 065
  44. MOMETASONE FUROATE [Suspect]
     Active Substance: MOMETASONE FUROATE
     Route: 048
  45. MOMETASONE FUROATE [Suspect]
     Active Substance: MOMETASONE FUROATE
     Route: 048
  46. MONTELUKAST [Suspect]
     Active Substance: MONTELUKAST SODIUM
     Indication: Product used for unknown indication
     Route: 065
  47. MONTELUKAST [Suspect]
     Active Substance: MONTELUKAST SODIUM
     Route: 048
  48. MONTELUKAST [Suspect]
     Active Substance: MONTELUKAST SODIUM
     Route: 065
  49. MONTELUKAST [Suspect]
     Active Substance: MONTELUKAST SODIUM
     Route: 048
  50. MONTELUKAST [Suspect]
     Active Substance: MONTELUKAST SODIUM
     Dosage: MONTELUKAST SODIUM
     Route: 065
  51. MONTELUKAST [Suspect]
     Active Substance: MONTELUKAST SODIUM
     Dosage: MONTELUKAST SODIUM
     Route: 048
  52. MONTELUKAST [Suspect]
     Active Substance: MONTELUKAST SODIUM
     Dosage: MONTELUKAST SODIUM
     Route: 048
  53. MONTELUKAST [Suspect]
     Active Substance: MONTELUKAST SODIUM
     Dosage: MONTELUKAST SODIUM
     Route: 065
  54. MONTELUKAST [Suspect]
     Active Substance: MONTELUKAST SODIUM
     Route: 065
  55. PREDNISONE [Suspect]
     Active Substance: PREDNISONE
     Indication: Product used for unknown indication
     Route: 065
  56. PREDNISONE [Suspect]
     Active Substance: PREDNISONE
     Route: 055
  57. PREDNISONE [Suspect]
     Active Substance: PREDNISONE
     Route: 065
  58. PREDNISONE [Suspect]
     Active Substance: PREDNISONE
     Route: 065
  59. PREDNISONE [Suspect]
     Active Substance: PREDNISONE
     Route: 048
  60. PREDNISONE [Suspect]
     Active Substance: PREDNISONE
     Route: 055
  61. PULMICORT TURBUHALER [Suspect]
     Active Substance: BUDESONIDE
     Indication: Product used for unknown indication
     Route: 065
  62. PULMICORT TURBUHALER [Suspect]
     Active Substance: BUDESONIDE
     Route: 055
  63. PULMICORT TURBUHALER [Suspect]
     Active Substance: BUDESONIDE
     Route: 050
  64. PULMICORT TURBUHALER [Suspect]
     Active Substance: BUDESONIDE
     Route: 055
  65. ROSUVASTATIN [Suspect]
     Active Substance: ROSUVASTATIN\ROSUVASTATIN CALCIUM
     Indication: Product used for unknown indication
     Route: 065
  66. ROSUVASTATIN [Suspect]
     Active Substance: ROSUVASTATIN\ROSUVASTATIN CALCIUM
     Route: 065
  67. ROSUVASTATIN [Suspect]
     Active Substance: ROSUVASTATIN\ROSUVASTATIN CALCIUM
     Dosage: ROSUVASTATIN CALCIUM
     Route: 048
  68. ROSUVASTATIN [Suspect]
     Active Substance: ROSUVASTATIN\ROSUVASTATIN CALCIUM
     Dosage: ROSUVASTATIN CALCIUM/ROSUVASTATIN
     Route: 065
  69. ROSUVASTATIN [Suspect]
     Active Substance: ROSUVASTATIN\ROSUVASTATIN CALCIUM
     Dosage: ROSUVASTATIN CALCIUM
     Route: 065
  70. ROSUVASTATIN [Suspect]
     Active Substance: ROSUVASTATIN\ROSUVASTATIN CALCIUM
     Dosage: ROSUVASTATIN CALCIUM
     Route: 048
  71. ROSUVASTATIN [Suspect]
     Active Substance: ROSUVASTATIN\ROSUVASTATIN CALCIUM
     Dosage: ROSUVASTATIN CALCIUM/ROSUVASTATIN
     Route: 048
  72. ROSUVASTATIN [Suspect]
     Active Substance: ROSUVASTATIN\ROSUVASTATIN CALCIUM
     Dosage: ROSUVASTATIN
     Route: 065
  73. ROSUVASTATIN [Suspect]
     Active Substance: ROSUVASTATIN\ROSUVASTATIN CALCIUM
     Dosage: ROSUVASTATIN
     Route: 048
  74. SINGULAIR [Suspect]
     Active Substance: MONTELUKAST SODIUM
     Indication: Product used for unknown indication
     Route: 065
  75. SINGULAIR [Suspect]
     Active Substance: MONTELUKAST SODIUM
     Route: 048
  76. SINGULAIR [Suspect]
     Active Substance: MONTELUKAST SODIUM
     Route: 048
  77. SINGULAIR [Suspect]
     Active Substance: MONTELUKAST SODIUM
     Route: 065
  78. SYNTHROID [Suspect]
     Active Substance: LEVOTHYROXINE SODIUM
     Indication: Product used for unknown indication
     Route: 065
  79. XOLAIR [Suspect]
     Active Substance: OMALIZUMAB
     Indication: Product used for unknown indication
     Route: 065
  80. IRON [Suspect]
     Active Substance: IRON
     Indication: Product used for unknown indication
     Route: 065
  81. IRON [Suspect]
     Active Substance: IRON
     Dosage: IRON SULPHATE
     Route: 065
  82. LEVOTHYROXINE SODIUM [Suspect]
     Active Substance: LEVOTHYROXINE SODIUM
     Indication: Product used for unknown indication
     Route: 005
  83. LEVOTHYROXINE SODIUM [Suspect]
     Active Substance: LEVOTHYROXINE SODIUM
     Route: 065
  84. LEVOTHYROXINE SODIUM [Suspect]
     Active Substance: LEVOTHYROXINE SODIUM
     Route: 048
  85. OMALIZUMAB [Suspect]
     Active Substance: OMALIZUMAB
     Indication: Product used for unknown indication
     Dosage: NOT SPECIFIED
     Route: 065
  86. BUDESONIDE\FORMOTEROL FUMARATE [Suspect]
     Active Substance: BUDESONIDE\FORMOTEROL FUMARATE
     Indication: Product used for unknown indication
     Route: 055
  87. BUDESONIDE\FORMOTEROL FUMARATE [Suspect]
     Active Substance: BUDESONIDE\FORMOTEROL FUMARATE
     Route: 065
  88. BUDESONIDE\FORMOTEROL FUMARATE [Suspect]
     Active Substance: BUDESONIDE\FORMOTEROL FUMARATE
     Route: 050
  89. JANUMET [Suspect]
     Active Substance: METFORMIN HYDROCHLORIDE\SITAGLIPTIN PHOSPHATE
     Indication: Product used for unknown indication
     Dosage: NOT SPECIFIED.
     Route: 065
  90. ROPINIROLE HYDROCHLORIDE [Suspect]
     Active Substance: ROPINIROLE HYDROCHLORIDE
     Indication: Product used for unknown indication
     Route: 065
  91. ROPINIROLE HYDROCHLORIDE [Suspect]
     Active Substance: ROPINIROLE HYDROCHLORIDE
     Route: 065
  92. ROPINIROLE HYDROCHLORIDE [Suspect]
     Active Substance: ROPINIROLE HYDROCHLORIDE
     Route: 065
  93. ROPINIROLE HYDROCHLORIDE [Suspect]
     Active Substance: ROPINIROLE HYDROCHLORIDE
     Route: 048
  94. ROPINIROLE HYDROCHLORIDE [Suspect]
     Active Substance: ROPINIROLE HYDROCHLORIDE
     Route: 065
  95. ROPINIROLE HYDROCHLORIDE [Suspect]
     Active Substance: ROPINIROLE HYDROCHLORIDE
     Route: 065
  96. ROPINIROLE HYDROCHLORIDE [Suspect]
     Active Substance: ROPINIROLE HYDROCHLORIDE
     Dosage: ROPINIROLE
     Route: 065
  97. ROPINIROLE HYDROCHLORIDE [Suspect]
     Active Substance: ROPINIROLE HYDROCHLORIDE
     Dosage: ROPINIROLE
     Route: 048
  98. ROPINIROLE HYDROCHLORIDE [Suspect]
     Active Substance: ROPINIROLE HYDROCHLORIDE
     Route: 065
  99. ROPINIROLE HYDROCHLORIDE [Suspect]
     Active Substance: ROPINIROLE HYDROCHLORIDE
     Route: 048
  100. ROPINIROLE HYDROCHLORIDE [Suspect]
     Active Substance: ROPINIROLE HYDROCHLORIDE
     Route: 048
  101. ROPINIROLE HYDROCHLORIDE [Suspect]
     Active Substance: ROPINIROLE HYDROCHLORIDE
     Route: 048
  102. SYMBICORT [Suspect]
     Active Substance: BUDESONIDE\FORMOTEROL FUMARATE DIHYDRATE
     Indication: Product used for unknown indication
     Route: 055
  103. SYMBICORT [Suspect]
     Active Substance: BUDESONIDE\FORMOTEROL FUMARATE DIHYDRATE
     Route: 055
  104. BUDESONIDE [Suspect]
     Active Substance: BUDESONIDE
     Indication: Product used for unknown indication
     Route: 055
  105. BUDESONIDE [Suspect]
     Active Substance: BUDESONIDE
     Dosage: INHALATION POWDER
     Route: 050
  106. BUDESONIDE [Suspect]
     Active Substance: BUDESONIDE
     Dosage: INHALATION POWDER
     Route: 048
  107. BUDESONIDE [Suspect]
     Active Substance: BUDESONIDE
     Dosage: INHALATION POWDER
     Route: 065
  108. BUDESONIDE [Suspect]
     Active Substance: BUDESONIDE
     Dosage: INHALATION POWDER
     Route: 055
  109. MOMETASONE [Suspect]
     Active Substance: MOMETASONE
     Indication: Product used for unknown indication
     Dosage: SPRAY, METERED DOSE
     Route: 065
  110. MOMETASONE [Suspect]
     Active Substance: MOMETASONE
     Route: 065
  111. MOMETASONE [Suspect]
     Active Substance: MOMETASONE
     Dosage: MOMETASONE FUROATE
     Route: 065
  112. RISEDRONATE SODIUM [Suspect]
     Active Substance: RISEDRONATE SODIUM
     Indication: Product used for unknown indication
     Route: 065
  113. RISEDRONATE SODIUM [Suspect]
     Active Substance: RISEDRONATE SODIUM
     Route: 065
  114. RISEDRONATE SODIUM [Suspect]
     Active Substance: RISEDRONATE SODIUM
     Dosage: RISEDRONATE SODIUM
     Route: 048
  115. RISEDRONATE SODIUM [Suspect]
     Active Substance: RISEDRONATE SODIUM
     Dosage: RISEDRONATE SODIUM
     Route: 065
  116. RISEDRONATE SODIUM [Suspect]
     Active Substance: RISEDRONATE SODIUM
     Dosage: RISEDRONATE SODIUM
     Route: 065
  117. RISEDRONATE SODIUM [Suspect]
     Active Substance: RISEDRONATE SODIUM
     Dosage: RISEDRONATE SODIUM
     Route: 048
  118. RISEDRONATE SODIUM [Suspect]
     Active Substance: RISEDRONATE SODIUM
     Dosage: RISEDRONATE SODIUM/RISEDRONATE
     Route: 048
  119. RISEDRONATE SODIUM [Suspect]
     Active Substance: RISEDRONATE SODIUM
     Dosage: RISEDRONATE SODIUM- NOT SPECIFIED
     Route: 048
  120. RISEDRONATE SODIUM [Suspect]
     Active Substance: RISEDRONATE SODIUM
     Dosage: RISEDRONATE SODIUM
     Route: 065
  121. RISEDRONATE SODIUM [Suspect]
     Active Substance: RISEDRONATE SODIUM
     Dosage: RISEDRONATE (MANUFACTURER UNKNOWN)
     Route: 065
  122. RISEDRONATE SODIUM [Suspect]
     Active Substance: RISEDRONATE SODIUM
     Dosage: RISEDRONATE (MANUFACTURER UNKNOWN)
     Route: 048
  123. RISEDRONATE SODIUM [Suspect]
     Active Substance: RISEDRONATE SODIUM
     Dosage: RISEDRONATE SODIUM/RISEDRONATE
     Route: 065
  124. ACTONEL [Suspect]
     Active Substance: RISEDRONATE SODIUM
     Indication: Product used for unknown indication
     Route: 065
  125. ACTONEL [Suspect]
     Active Substance: RISEDRONATE SODIUM
     Route: 048
  126. ACTONEL [Suspect]
     Active Substance: RISEDRONATE SODIUM
     Route: 065
  127. ACTONEL [Suspect]
     Active Substance: RISEDRONATE SODIUM
     Route: 048
  128. SITAGLIPTIN [Suspect]
     Active Substance: SITAGLIPTIN
     Indication: Product used for unknown indication
     Route: 048
  129. SITAGLIPTIN [Suspect]
     Active Substance: SITAGLIPTIN
     Route: 065
  130. SITAGLIPTIN [Suspect]
     Active Substance: SITAGLIPTIN
     Route: 065
  131. SITAGLIPTIN [Suspect]
     Active Substance: SITAGLIPTIN
     Route: 048
  132. SITAGLIPTIN [Suspect]
     Active Substance: SITAGLIPTIN
     Dosage: SITAGLIPTIN PHOSPHATE MONOHYDRATE
     Route: 048
  133. SITAGLIPTIN [Suspect]
     Active Substance: SITAGLIPTIN
     Dosage: SITAGLIPTIN PHOSPHATE MONOHYDRATE
     Route: 065
  134. SITAGLIPTIN [Suspect]
     Active Substance: SITAGLIPTIN
     Dosage: SITAGLIPTIN PHOSPHATE
     Route: 048
  135. SITAGLIPTIN [Suspect]
     Active Substance: SITAGLIPTIN
     Dosage: SITAGLIPTIN PHOSPHATE
     Route: 048
  136. SITAGLIPTIN [Suspect]
     Active Substance: SITAGLIPTIN
     Dosage: SITAGLIPTIN PHOSPHATE MONOHYDRATE
     Route: 065
  137. METFORMIN HYDROCHLORIDE [Suspect]
     Active Substance: METFORMIN HYDROCHLORIDE
     Indication: Product used for unknown indication
     Route: 065
  138. CANAGLIFLOZIN [Suspect]
     Active Substance: CANAGLIFLOZIN
     Indication: Type 2 diabetes mellitus
     Route: 048
  139. CANAGLIFLOZIN [Suspect]
     Active Substance: CANAGLIFLOZIN
     Route: 065
  140. CANAGLIFLOZIN [Suspect]
     Active Substance: CANAGLIFLOZIN
     Route: 048
  141. CANAGLIFLOZIN [Suspect]
     Active Substance: CANAGLIFLOZIN
     Route: 065
  142. ALBUTEROL [Suspect]
     Active Substance: ALBUTEROL
     Indication: Product used for unknown indication
     Route: 065
  143. ALBUTEROL [Suspect]
     Active Substance: ALBUTEROL
     Route: 065
  144. FORMOTEROL [Suspect]
     Active Substance: FORMOTEROL
     Indication: Product used for unknown indication
     Route: 005
  145. FORMOTEROL [Suspect]
     Active Substance: FORMOTEROL
     Route: 055
  146. FORMOTEROL [Suspect]
     Active Substance: FORMOTEROL
     Dosage: FORMOTEROL FUMARATE
     Route: 005
  147. FORMOTEROL [Suspect]
     Active Substance: FORMOTEROL
     Dosage: FORMOTEROL FUMARATE
     Route: 055
  148. FORMOTEROL [Suspect]
     Active Substance: FORMOTEROL
     Dosage: FORMOTEROL FUMARATE
     Route: 065
  149. FORMOTEROL [Suspect]
     Active Substance: FORMOTEROL
     Dosage: FORMOTEROL FOR INHALATION
     Route: 005
  150. FORMOTEROL [Suspect]
     Active Substance: FORMOTEROL
     Dosage: FORMOTEROL FOR INHALATION
     Route: 065
  151. FORMOTEROL [Suspect]
     Active Substance: FORMOTEROL
     Dosage: FORMOTEROL FOR INHALATION
     Route: 055
  152. RISEDRONIC ACID [Suspect]
     Active Substance: RISEDRONIC ACID
     Indication: Product used for unknown indication
     Route: 065
  153. RISEDRONIC ACID [Suspect]
     Active Substance: RISEDRONIC ACID
     Route: 048
  154. RISEDRONIC ACID [Suspect]
     Active Substance: RISEDRONIC ACID
     Dosage: RISEDRONATE
     Route: 065
  155. SYNTHROID [Suspect]
     Active Substance: LEVOTHYROXINE SODIUM
     Indication: Product used for unknown indication
     Route: 065
  156. PREVACID [Suspect]
     Active Substance: LANSOPRAZOLE
     Indication: Product used for unknown indication
     Dosage: PREVACID FASTAB
     Route: 048
  157. PREVACID [Suspect]
     Active Substance: LANSOPRAZOLE
     Route: 065
  158. PREVACID [Suspect]
     Active Substance: LANSOPRAZOLE
     Route: 065
  159. PREVACID [Suspect]
     Active Substance: LANSOPRAZOLE
     Route: 048
  160. PREVACID [Suspect]
     Active Substance: LANSOPRAZOLE
     Route: 048
  161. PREVACID [Suspect]
     Active Substance: LANSOPRAZOLE
     Route: 065
  162. PREVACID [Suspect]
     Active Substance: LANSOPRAZOLE
     Dosage: CAPSULE, DELAYED RELEASE
     Route: 065
  163. PREVACID [Suspect]
     Active Substance: LANSOPRAZOLE
     Dosage: CAPSULE, DELAYED RELEASE
     Route: 048
  164. PREVACID [Suspect]
     Active Substance: LANSOPRAZOLE
     Dosage: CAPSULE, DELAYED RELEASE
     Route: 065
  165. PREVACID [Suspect]
     Active Substance: LANSOPRAZOLE
     Dosage: CAPSULE, DELAYED RELEASE
     Route: 065
  166. PREVACID [Suspect]
     Active Substance: LANSOPRAZOLE
     Route: 048
  167. PREVACID [Suspect]
     Active Substance: LANSOPRAZOLE
     Route: 065
  168. IRON DEXTRAN [Suspect]
     Active Substance: IRON DEXTRAN
     Indication: Product used for unknown indication
     Route: 065
  169. IRON DEXTRAN [Suspect]
     Active Substance: IRON DEXTRAN
     Dosage: IRON DEXTRAN COMPLEX LIQUID INTRAMUSCULAR
     Route: 065
  170. IRON DEXTRAN [Suspect]
     Active Substance: IRON DEXTRAN
     Route: 030
  171. CANAGLIFLOZIN\METFORMIN HYDROCHLORIDE [Suspect]
     Active Substance: CANAGLIFLOZIN\METFORMIN HYDROCHLORIDE
     Indication: Type 2 diabetes mellitus
     Route: 048
  172. CANAGLIFLOZIN\METFORMIN HYDROCHLORIDE [Suspect]
     Active Substance: CANAGLIFLOZIN\METFORMIN HYDROCHLORIDE
     Route: 048
  173. CANAGLIFLOZIN\METFORMIN HYDROCHLORIDE [Suspect]
     Active Substance: CANAGLIFLOZIN\METFORMIN HYDROCHLORIDE
     Route: 065
  174. CANAGLIFLOZIN\METFORMIN HYDROCHLORIDE [Suspect]
     Active Substance: CANAGLIFLOZIN\METFORMIN HYDROCHLORIDE
     Route: 065
  175. JANUVIA [Suspect]
     Active Substance: SITAGLIPTIN PHOSPHATE
     Indication: Product used for unknown indication
     Route: 065
  176. JANUVIA [Suspect]
     Active Substance: SITAGLIPTIN PHOSPHATE
     Route: 048
  177. JANUVIA [Suspect]
     Active Substance: SITAGLIPTIN PHOSPHATE
     Route: 048
  178. JANUVIA [Suspect]
     Active Substance: SITAGLIPTIN PHOSPHATE
     Route: 065
  179. NASONEX [Suspect]
     Active Substance: MOMETASONE FUROATE
     Indication: Product used for unknown indication
     Dosage: NASAL SPRAY, SUSPENSION
     Route: 065
  180. NASONEX [Suspect]
     Active Substance: MOMETASONE FUROATE
     Dosage: SPRAY, METERED DOSE
     Route: 065
  181. METFORMIN\SITAGLIPTIN [Suspect]
     Active Substance: METFORMIN\SITAGLIPTIN
     Indication: Product used for unknown indication
     Route: 065
  182. METFORMIN\SITAGLIPTIN [Suspect]
     Active Substance: METFORMIN\SITAGLIPTIN
     Dosage: METFORMIN HYDROCHLORIDE;SITAGLIPTIN PHOSPHATE
     Route: 048
  183. METFORMIN\SITAGLIPTIN [Suspect]
     Active Substance: METFORMIN\SITAGLIPTIN
     Dosage: METFORMIN HYDROCHLORIDE;SITAGLIPTIN PHOSPHATE
     Route: 065
  184. METFORMIN\SITAGLIPTIN [Suspect]
     Active Substance: METFORMIN\SITAGLIPTIN
     Dosage: METFORMIN HYDROCHLORIDE;SITAGLIPTIN PHOSPHATE
     Route: 048
  185. METFORMIN\SITAGLIPTIN [Suspect]
     Active Substance: METFORMIN\SITAGLIPTIN
     Dosage: METFORMIN HYDROCHLORIDE;SITAGLIPTIN PHOSPHATE
     Route: 065
  186. METFORMIN\SITAGLIPTIN [Suspect]
     Active Substance: METFORMIN\SITAGLIPTIN
     Dosage: METFORMIN HYDROCHLORIDE;SITAGLIPTIN PHOSPHATE MONOHYDRATE
     Route: 065
  187. METFORMIN\SITAGLIPTIN [Suspect]
     Active Substance: METFORMIN\SITAGLIPTIN
     Dosage: METFORMIN HYDROCHLORIDE;SITAGLIPTIN PHOSPHATE MONOHYDRATE
     Route: 065
  188. METFORMIN\SITAGLIPTIN [Suspect]
     Active Substance: METFORMIN\SITAGLIPTIN
     Route: 048
  189. METFORMIN\SITAGLIPTIN [Suspect]
     Active Substance: METFORMIN\SITAGLIPTIN
     Dosage: METFORMIN HYDROCHLORIDE;SITAGLIPTIN PHOSPHATE
     Route: 048
  190. ALBUTEROL [Suspect]
     Active Substance: ALBUTEROL
     Indication: Asthma
     Route: 065
  191. ALBUTEROL [Suspect]
     Active Substance: ALBUTEROL
     Route: 048
  192. ALBUTEROL [Suspect]
     Active Substance: ALBUTEROL
     Route: 065
  193. INVOKAMET [Suspect]
     Active Substance: CANAGLIFLOZIN\METFORMIN HYDROCHLORIDE
     Indication: Type 2 diabetes mellitus
     Route: 065
  194. INVOKAMET [Suspect]
     Active Substance: CANAGLIFLOZIN\METFORMIN HYDROCHLORIDE
     Route: 048
  195. INVOKAMET [Suspect]
     Active Substance: CANAGLIFLOZIN\METFORMIN HYDROCHLORIDE
     Route: 048
  196. INVOKAMET [Suspect]
     Active Substance: CANAGLIFLOZIN\METFORMIN HYDROCHLORIDE
     Route: 065
  197. HYDROCORTISONE [Suspect]
     Active Substance: HYDROCORTISONE\HYDROCORTISONE ACETATE
     Indication: Product used for unknown indication
     Dosage: TABLET (DELAYED AND EXTENDED RELEASE)
     Route: 065
  198. HYDROCORTISONE [Suspect]
     Active Substance: HYDROCORTISONE\HYDROCORTISONE ACETATE
     Route: 048
  199. HYDROCORTISONE [Suspect]
     Active Substance: HYDROCORTISONE\HYDROCORTISONE ACETATE
     Route: 065
  200. FERROUS FUMARATE [Suspect]
     Active Substance: FERROUS FUMARATE
     Indication: Product used for unknown indication
     Route: 065

REACTIONS (5)
  - Full blood count abnormal [Unknown]
  - Gastrooesophageal reflux disease [Unknown]
  - Asthma [Unknown]
  - Type 2 diabetes mellitus [Unknown]
  - Hyperglycaemia [Unknown]
